FAERS Safety Report 8608735-1 (Version None)
Quarter: 2012Q3

REPORT INFORMATION
  Report Type: 
  Country: None (occurrence: None)
  Receive Date: 20120809
  Receipt Date: 20120809
  Transmission Date: 20120928
  Serious: Yes (Other)
  Sender: FDA-Public Use
  Company Number: None

PATIENT
  Sex: Female

DRUGS (1)
  1. COPAXONE [Suspect]
     Dosage: 20MG INJECTABLE QDAY
     Dates: start: 20120525

REACTIONS (9)
  - INJECTION SITE REACTION [None]
  - PRURITUS [None]
  - VOMITING [None]
  - SENSATION OF FOREIGN BODY [None]
  - DIARRHOEA [None]
  - ANXIETY [None]
  - BURNING SENSATION [None]
  - INJECTION SITE HAEMORRHAGE [None]
  - FEELING HOT [None]
